FAERS Safety Report 19048677 (Version 44)
Quarter: 2023Q4

REPORT INFORMATION
  Report Type: Spontaneous
  Country: CA (occurrence: CA)
  Receive Date: 20210324
  Receipt Date: 20231211
  Transmission Date: 20240110
  Serious: Yes (Other)
  Sender: FDA-Public Use
  Company Number: CA-CELLTRION INC.-2019CA026312

PATIENT

DRUGS (44)
  1. INFLECTRA [Suspect]
     Active Substance: INFLIXIMAB-DYYB
     Indication: Crohn^s disease
     Dosage: 666 MG, UNK
     Route: 042
     Dates: start: 20191022
  2. INFLECTRA [Suspect]
     Active Substance: INFLIXIMAB-DYYB
     Dosage: 670 MG, Q 0, 2, 6 THEN EVERY 8 WEEKS
     Route: 042
     Dates: start: 20191022, end: 20191205
  3. INFLECTRA [Suspect]
     Active Substance: INFLIXIMAB-DYYB
     Dosage: 690.5 MG, UNK
     Route: 042
     Dates: start: 20191104
  4. INFLECTRA [Suspect]
     Active Substance: INFLIXIMAB-DYYB
     Dosage: 766.5 MG, UNK
     Route: 042
     Dates: start: 20191205
  5. INFLECTRA [Suspect]
     Active Substance: INFLIXIMAB-DYYB
     Dosage: 5 MG/KG, EVERY 4 WEEKS
     Route: 042
     Dates: start: 20200130, end: 20210330
  6. INFLECTRA [Suspect]
     Active Substance: INFLIXIMAB-DYYB
     Dosage: 5 MG/KG, EVERY 4 WEEKS
     Route: 042
     Dates: start: 20200130, end: 20210330
  7. INFLECTRA [Suspect]
     Active Substance: INFLIXIMAB-DYYB
     Dosage: 5 MG/KG, EVERY 4 WEEKS
     Route: 042
     Dates: start: 20200225
  8. INFLECTRA [Suspect]
     Active Substance: INFLIXIMAB-DYYB
     Dosage: 5 MG/KG, EVERY 4 WEEKS
     Route: 042
     Dates: start: 20200326
  9. INFLECTRA [Suspect]
     Active Substance: INFLIXIMAB-DYYB
     Dosage: 5 MG/KG, EVERY 4 WEEKS
     Route: 042
     Dates: start: 20200519
  10. INFLECTRA [Suspect]
     Active Substance: INFLIXIMAB-DYYB
     Dosage: 5 MG/KG, EVERY 4 WEEKS
     Route: 042
     Dates: start: 20200713
  11. INFLECTRA [Suspect]
     Active Substance: INFLIXIMAB-DYYB
     Dosage: 5 MG/KG, EVERY 4 WEEKS
     Route: 042
     Dates: start: 20210208
  12. INFLECTRA [Suspect]
     Active Substance: INFLIXIMAB-DYYB
     Dosage: 5 MG/KG, EVERY 4 WEEKS
     Route: 042
     Dates: start: 20210330
  13. INFLECTRA [Suspect]
     Active Substance: INFLIXIMAB-DYYB
     Dosage: 5 MG/KG, Q 0, 2, 6 THEN EVERY 4 WEEKS
     Route: 042
     Dates: start: 20210727, end: 20211111
  14. INFLECTRA [Suspect]
     Active Substance: INFLIXIMAB-DYYB
     Dosage: 5 MG/KG, 0, 2, 6 THEN EVERY 4 WEEKS
     Route: 042
     Dates: start: 20210810
  15. INFLECTRA [Suspect]
     Active Substance: INFLIXIMAB-DYYB
     Dosage: 5 MG/KG, 0, 2, 6 THEN EVERY 4 WEEKS
     Route: 042
     Dates: start: 20210916
  16. INFLECTRA [Suspect]
     Active Substance: INFLIXIMAB-DYYB
     Dosage: 5 MG/KG, 0, 2, 6 THEN EVERY 4 WEEKS
     Route: 042
     Dates: start: 20211014
  17. INFLECTRA [Suspect]
     Active Substance: INFLIXIMAB-DYYB
     Dosage: 1000 MG (7.5 MG/KG, EVERY 4 WEEKS)
     Route: 042
     Dates: start: 20211209, end: 20221004
  18. INFLECTRA [Suspect]
     Active Substance: INFLIXIMAB-DYYB
     Dosage: 1000 MG (7.5 MG/KG, EVERY 4 WEEKS)
     Route: 042
     Dates: start: 20220201
  19. INFLECTRA [Suspect]
     Active Substance: INFLIXIMAB-DYYB
     Dosage: 1000 MG (7.5 MG/KG, EVERY 4 WEEKS)
     Route: 042
     Dates: start: 20220628
  20. INFLECTRA [Suspect]
     Active Substance: INFLIXIMAB-DYYB
     Dosage: 1000 MG (7.5 MG/KG, EVERY 4 WEEKS)
     Route: 042
     Dates: start: 20220811
  21. INFLECTRA [Suspect]
     Active Substance: INFLIXIMAB-DYYB
     Dosage: 1238 MG (7.5MG/KG, EVERY 4 WEEKS)
     Route: 042
     Dates: start: 20220907
  22. INFLECTRA [Suspect]
     Active Substance: INFLIXIMAB-DYYB
     Dosage: 1000 MG (7.5 MG/KG, EVERY 4 WEEKS)
     Route: 042
     Dates: start: 20221004
  23. INFLECTRA [Suspect]
     Active Substance: INFLIXIMAB-DYYB
     Dosage: 1300 MG, EVERY 4 WEEKS
     Route: 042
     Dates: start: 20221109, end: 20230323
  24. INFLECTRA [Suspect]
     Active Substance: INFLIXIMAB-DYYB
     Dosage: 1300 MG, EVERY 4 WEEKS
     Route: 042
     Dates: start: 20230118
  25. INFLECTRA [Suspect]
     Active Substance: INFLIXIMAB-DYYB
     Dosage: 1300 MG EVERY 4 WEEK
     Route: 042
     Dates: start: 20230323, end: 20230323
  26. INFLECTRA [Suspect]
     Active Substance: INFLIXIMAB-DYYB
     Dosage: 1700 MG EVERY 4 WEEKS
     Route: 042
     Dates: start: 20230419
  27. INFLECTRA [Suspect]
     Active Substance: INFLIXIMAB-DYYB
     Dosage: 1700 MG 5 WEEKS 6 DAYS AFTER LAST INFUSION (PRESCRIBED EVERY 4 WEEKS)
     Route: 042
     Dates: start: 20230530
  28. INFLECTRA [Suspect]
     Active Substance: INFLIXIMAB-DYYB
     Dosage: 1700 MG EVERY 4 WEEKS
     Route: 042
     Dates: start: 20230705
  29. INFLECTRA [Suspect]
     Active Substance: INFLIXIMAB-DYYB
     Dosage: 1700 MG, 7 WEEKS AND 2 DAYS (EVERY 4 WEEKS)
     Route: 042
     Dates: start: 20230825
  30. INFLECTRA [Suspect]
     Active Substance: INFLIXIMAB-DYYB
     Dosage: 1700 MG, EVERY 4 WEEKS
     Route: 042
     Dates: start: 20230927
  31. INFLECTRA [Suspect]
     Active Substance: INFLIXIMAB-DYYB
     Dosage: UNK
     Route: 042
     Dates: start: 20231101
  32. ABILIFY [Concomitant]
     Active Substance: ARIPIPRAZOLE
     Dosage: 4 MG
  33. DOXYLAMINE [Concomitant]
     Active Substance: DOXYLAMINE
     Dosage: 10 MG
  34. FOLIC ACID [Concomitant]
     Active Substance: FOLIC ACID
     Dosage: 5 MG
  35. IMODIUM [Concomitant]
     Active Substance: LOPERAMIDE HYDROCHLORIDE
     Dosage: DAILY
  36. IMODIUM [Concomitant]
     Active Substance: LOPERAMIDE HYDROCHLORIDE
     Dosage: DAILY
     Route: 065
  37. IMODIUM [Concomitant]
     Active Substance: LOPERAMIDE HYDROCHLORIDE
     Dosage: 1 DF, 2 TABS DAILY
  38. METHOTREXATE [Concomitant]
     Active Substance: METHOTREXATE
     Dosage: 7.5 MG, WEEKLY
     Route: 065
  39. METHOTREXATE [Concomitant]
     Active Substance: METHOTREXATE
     Dosage: UNK UNK, WEEKLY
     Route: 065
  40. METHOTREXATE [Concomitant]
     Active Substance: METHOTREXATE
     Dosage: 7.5 MG, WEEKLY
     Route: 065
  41. PREDNISONE [Concomitant]
     Active Substance: PREDNISONE
     Dosage: 30 MG, UNK (TAPERING)
  42. PREDNISONE [Concomitant]
     Active Substance: PREDNISONE
     Dosage: 30 MG, TAPERING
  43. SERTRALINE [Concomitant]
     Active Substance: SERTRALINE HYDROCHLORIDE
     Dosage: 150 MG,DOSE FREQUENCY: UNKNOWN
     Route: 065
  44. VITAMIN D3 [Concomitant]
     Active Substance: CHOLECALCIFEROL
     Dosage: UNK UNK, DAILY APPROXIMATELY 4000 UNITS

REACTIONS (62)
  - Osteomyelitis [Unknown]
  - Skin infection [Recovered/Resolved]
  - Tooth infection [Recovered/Resolved]
  - Cardiac failure congestive [Unknown]
  - Condition aggravated [Not Recovered/Not Resolved]
  - Localised infection [Unknown]
  - Therapeutic response shortened [Unknown]
  - Drug ineffective [Unknown]
  - Drug resistance [Unknown]
  - Nasopharyngitis [Unknown]
  - Weight increased [Not Recovered/Not Resolved]
  - Arthralgia [Not Recovered/Not Resolved]
  - Poor venous access [Unknown]
  - Blister [Recovering/Resolving]
  - Joint swelling [Unknown]
  - Mouth swelling [Unknown]
  - Foreign body in mouth [Unknown]
  - Pain [Not Recovered/Not Resolved]
  - Axillary mass [Unknown]
  - Anaemia [Unknown]
  - Inflammation [Recovering/Resolving]
  - Swelling [Unknown]
  - Erythema [Unknown]
  - Infected cyst [Recovering/Resolving]
  - Abscess [Not Recovered/Not Resolved]
  - Localised infection [Unknown]
  - Purulent discharge [Unknown]
  - COVID-19 [Recovered/Resolved]
  - Malaise [Recovering/Resolving]
  - Headache [Recovered/Resolved]
  - Rhinorrhoea [Recovered/Resolved]
  - Nasal congestion [Recovered/Resolved]
  - Blood pressure diastolic decreased [Not Recovered/Not Resolved]
  - Heart rate increased [Not Recovered/Not Resolved]
  - Nausea [Not Recovered/Not Resolved]
  - Pallor [Recovering/Resolving]
  - Tachypnoea [Recovering/Resolving]
  - Cold sweat [Recovering/Resolving]
  - Hyperhidrosis [Recovering/Resolving]
  - Ear discomfort [Not Recovered/Not Resolved]
  - Ear infection [Not Recovered/Not Resolved]
  - Musculoskeletal stiffness [Unknown]
  - Brain fog [Unknown]
  - Amnesia [Unknown]
  - Vitamin D decreased [Unknown]
  - Vomiting [Unknown]
  - Arthropod bite [Not Recovered/Not Resolved]
  - COVID-19 [Unknown]
  - Dysuria [Not Recovered/Not Resolved]
  - Headache [Unknown]
  - Peripheral swelling [Recovered/Resolved]
  - Paraesthesia [Unknown]
  - Hypoaesthesia [Unknown]
  - C-reactive protein increased [Unknown]
  - Dyspnoea [Unknown]
  - Chest discomfort [Unknown]
  - Oedema [Unknown]
  - Inappropriate schedule of product administration [Unknown]
  - Off label use [Unknown]
  - Off label use [Unknown]
  - Intentional product use issue [Unknown]
  - Incorrect dose administered [Unknown]

NARRATIVE: CASE EVENT DATE: 20191022
